FAERS Safety Report 24792982 (Version 1)
Quarter: 2024Q4

REPORT INFORMATION
  Report Type: Report from Study
  Country: US (occurrence: US)
  Receive Date: 20241231
  Receipt Date: 20241231
  Transmission Date: 20250114
  Serious: Yes (Other)
  Sender: TEVA
  Company Number: US-TEVA-VS-3280550

PATIENT

DRUGS (6)
  1. FLUOROURACIL [Suspect]
     Active Substance: FLUOROURACIL
     Indication: Gastrointestinal carcinoma
     Dosage: OVER 46H, EVERY 14 DAYS, 5-FU, FOLFOXIRITAX REGIMEN
     Route: 042
  2. LEUCOVORIN [Suspect]
     Active Substance: LEUCOVORIN\LEUCOVORIN CALCIUM
     Indication: Gastrointestinal carcinoma
     Dosage: EVERY 14 DAYS, LEUCOVORIN, FOLFOXIRITAX REGIMEN
     Route: 042
  3. PEGFILGRASTIM [Suspect]
     Active Substance: PEGFILGRASTIM
     Indication: Prophylaxis
     Route: 065
  4. IRINOTECAN [Suspect]
     Active Substance: IRINOTECAN
     Indication: Gastrointestinal carcinoma
     Route: 065
  5. DOCETAXEL [Suspect]
     Active Substance: DOCETAXEL
     Indication: Gastrointestinal carcinoma
     Dosage: EVERY 14 DAYS, FOLFOXIRITAX REGIMEN
     Route: 042
  6. OXALIPLATIN [Suspect]
     Active Substance: OXALIPLATIN
     Indication: Gastrointestinal carcinoma
     Dosage: EVERY 14 DAYS, FOLFOXIRITAX REGIMEN
     Route: 042

REACTIONS (2)
  - Diarrhoea [Unknown]
  - Drug ineffective [Unknown]
